FAERS Safety Report 11868189 (Version 1)
Quarter: 2015Q4

REPORT INFORMATION
  Report Type: Spontaneous
  Country: US (occurrence: US)
  Receive Date: 20151224
  Receipt Date: 20151224
  Transmission Date: 20160305
  Serious: Yes (Death, Life-Threatening, Hospitalization, Other)
  Sender: FDA-Public Use
  Company Number: US-ASTRAZENECA-2014SE01291

PATIENT
  Age: 23685 Day
  Sex: Male
  Weight: 92.1 kg

DRUGS (19)
  1. OXYCODONE [Concomitant]
     Active Substance: OXYCODONE
  2. MAGNESIUM ASPARTATE [Concomitant]
     Active Substance: MAGNESIUM ASPARTATE
     Route: 048
  3. SANDOSTATIN [Concomitant]
     Active Substance: OCTREOTIDE ACETATE
     Dates: start: 20111205
  4. LISINOPRIL. [Concomitant]
     Active Substance: LISINOPRIL
  5. FENTANYL. [Concomitant]
     Active Substance: FENTANYL
     Dosage: 15MCG/HR,25MCG; 45 UG EVERY 3RD DAY
  6. ONDANSETRON [Concomitant]
     Active Substance: ONDANSETRON
     Indication: NAUSEA
  7. BYETTA [Suspect]
     Active Substance: EXENATIDE
     Route: 065
     Dates: start: 201104
  8. DILAUDID [Concomitant]
     Active Substance: HYDROMORPHONE HYDROCHLORIDE
     Indication: PAIN
  9. HYDROMORPHONE HYDROCHLORIDE. [Concomitant]
     Active Substance: HYDROMORPHONE HYDROCHLORIDE
     Route: 048
     Dates: start: 20111205
  10. KLOR-CON [Concomitant]
     Active Substance: POTASSIUM CHLORIDE
  11. FLAGYL [Concomitant]
     Active Substance: METRONIDAZOLE\METRONIDAZOLE HYDROCHLORIDE
     Dates: start: 20111205
  12. METOPROLOL [Concomitant]
     Active Substance: METOPROLOL
     Dosage: 125MG
     Route: 048
  13. MAGNESIUM [Concomitant]
     Active Substance: MAGNESIUM
     Route: 042
  14. FUROSEMIDE. [Concomitant]
     Active Substance: FUROSEMIDE
  15. LANTUS [Concomitant]
     Active Substance: INSULIN GLARGINE
  16. SPIRONOLACTONE. [Concomitant]
     Active Substance: SPIRONOLACTONE
  17. HUMALOG [Concomitant]
     Active Substance: INSULIN LISPRO
  18. PRILOSEC [Concomitant]
     Active Substance: OMEPRAZOLE MAGNESIUM
  19. TPN [Concomitant]
     Active Substance: AMINO ACIDS\DEXTROSE\ELECTROLYTES NOS\SOYBEAN OIL

REACTIONS (8)
  - Pancreatic carcinoma stage III [Fatal]
  - Pancreatitis acute [Unknown]
  - Jaundice cholestatic [Unknown]
  - Pancreatic pseudocyst [Unknown]
  - Acute myocardial infarction [Unknown]
  - Pancreatitis necrotising [Unknown]
  - Ventricular fibrillation [Recovered/Resolved]
  - Cardiac arrest [Recovered/Resolved]

NARRATIVE: CASE EVENT DATE: 20110527
